FAERS Safety Report 20623938 (Version 1)
Quarter: 2022Q1

REPORT INFORMATION
  Report Type: Spontaneous
  Country: KR (occurrence: None)
  Receive Date: 20220322
  Receipt Date: 20220322
  Transmission Date: 20220423
  Serious: Yes (Death)
  Sender: FDA-Public Use
  Company Number: KR-Eisai Medical Research-EC-2022-111174

PATIENT
  Sex: Female

DRUGS (1)
  1. HALAVEN [Suspect]
     Active Substance: ERIBULIN MESYLATE
     Indication: Product used for unknown indication
     Dosage: DOSE UNKNOWN
     Route: 041

REACTIONS (1)
  - Death [Fatal]
